FAERS Safety Report 14142351 (Version 3)
Quarter: 2021Q3

REPORT INFORMATION
  Report Type: Spontaneous
  Country: FR (occurrence: FR)
  Receive Date: 20171030
  Receipt Date: 20210927
  Transmission Date: 20211014
  Serious: Yes (Hospitalization)
  Sender: FDA-Public Use
  Company Number: FR-PFIZER INC-2017461732

PATIENT
  Age: 78 Year
  Sex: Male
  Weight: 71 kg

DRUGS (13)
  1. FOSFOCINA /00552501/ [Suspect]
     Active Substance: FOSFOMYCIN
     Indication: POSTOPERATIVE WOUND INFECTION
     Dosage: 1 DF, 1X/DAY
     Route: 041
     Dates: start: 20171002, end: 20171006
  2. PARACETAMOL [Concomitant]
     Active Substance: ACETAMINOPHEN
     Dosage: UNK
  3. TYGACIL [Suspect]
     Active Substance: TIGECYCLINE
     Indication: POSTOPERATIVE WOUND INFECTION
     Dosage: 50 MG, 2X/DAY
     Route: 041
     Dates: start: 20171007
  4. FUROSEMIDE. [Concomitant]
     Active Substance: FUROSEMIDE
     Dosage: UNK
  5. MAGNE B6 [Concomitant]
     Active Substance: MAGNESIUM\PYRIDOXINE
     Dosage: UNK
  6. SALBUTAMOL [Concomitant]
     Active Substance: ALBUTEROL
     Dosage: UNK
  7. IMIPENEM CILASTATIN PANPHARMA [Suspect]
     Active Substance: CILASTATIN SODIUM\IMIPENEM
     Indication: POSTOPERATIVE WOUND INFECTION
     Dosage: 2000 MG, DAILY (EVERY 24 HOURS)
     Route: 041
     Dates: start: 20171002, end: 20171006
  8. FRAGMINE [Concomitant]
     Active Substance: DALTEPARIN SODIUM
     Dosage: UNK
  9. PANTOPRAZOLE [Concomitant]
     Active Substance: PANTOPRAZOLE
     Dosage: UNK
  10. XATRAL [Concomitant]
     Active Substance: ALFUZOSIN
     Dosage: UNK
  11. NEGABAN [Suspect]
     Active Substance: TEMOCILLIN
     Indication: POSTOPERATIVE WOUND INFECTION
     Dosage: 8 G, 1X/DAY
     Route: 041
     Dates: start: 20171006, end: 20171007
  12. AMLODIPINE [Concomitant]
     Active Substance: AMLODIPINE BESYLATE
     Dosage: UNK
  13. DOMPERIDONE [Concomitant]
     Active Substance: DOMPERIDONE
     Dosage: UNK

REACTIONS (3)
  - Pruritus [Recovered/Resolved]
  - Oedema peripheral [Recovered/Resolved]
  - Rash [Recovered/Resolved]

NARRATIVE: CASE EVENT DATE: 20171007
